FAERS Safety Report 10576503 (Version 8)
Quarter: 2015Q1

REPORT INFORMATION
  Report Type: Spontaneous
  Country: US (occurrence: US)
  Receive Date: 20141111
  Receipt Date: 20150331
  Transmission Date: 20150720
  Serious: Yes (Hospitalization)
  Sender: FDA-Public Use
  Company Number: US-ACTELION-A-NJ2014-104045

PATIENT
  Age: 56 Year
  Sex: Female

DRUGS (3)
  1. ADCIRCA [Concomitant]
     Active Substance: TADALAFIL
  2. FUROSEMIDE. [Concomitant]
     Active Substance: FUROSEMIDE
  3. VELETRI [Suspect]
     Active Substance: EPOPROSTENOL
     Indication: PULMONARY ARTERIAL HYPERTENSION
     Dosage: 37.8 NG/KG, PER MIN
     Route: 042
     Dates: start: 20140710

REACTIONS (11)
  - Malaise [Unknown]
  - Fluid overload [Unknown]
  - Malnutrition [Unknown]
  - Infection [Unknown]
  - Pulmonary arterial hypertension [Unknown]
  - Blood potassium decreased [Unknown]
  - Hepatic cirrhosis [Unknown]
  - Cachexia [Unknown]
  - Depression [Unknown]
  - Dyspnoea [Unknown]
  - Abdominal distension [Unknown]

NARRATIVE: CASE EVENT DATE: 20140813
